FAERS Safety Report 5421609-2 (Version None)
Quarter: 2007Q3

REPORT INFORMATION
  Report Type: 
  Country: None (occurrence: None)
  Receive Date: 20070723
  Receipt Date: 20070405
  Transmission Date: 20080115
  Serious: No
  Sender: FDA-Public Use
  Company Number: 2007-BP-04888BP

PATIENT

DRUGS (2)
  1. APTIVUS [Suspect]
     Dosage: SEE IMAGE
  2. RITONAVIR [Suspect]
     Dosage: SEE IMAGE

REACTIONS (1)
  - BLOOD CHOLESTEROL INCREASED [None]
